FAERS Safety Report 8900536 (Version 2)
Quarter: 2012Q4

REPORT INFORMATION
  Report Type: Report from Study
  Country: DE (occurrence: DE)
  Receive Date: 20121109
  Receipt Date: 20121130
  Transmission Date: 20130627
  Serious: Yes (Life-Threatening, Hospitalization)
  Sender: FDA-Public Use
  Company Number: DE-PFIZER INC-2012279737

PATIENT
  Age: 73 Year
  Sex: Male

DRUGS (15)
  1. CISPLATIN [Suspect]
     Indication: NON-SMALL CELL LUNG CANCER
     Dosage: 150 mg (75 mg/m2)
     Route: 042
     Dates: start: 20120315, end: 20120315
  2. TAXOTERE [Suspect]
     Indication: NON-SMALL CELL LUNG CANCER
     Dosage: 150 mg (75 mg/m2)
     Route: 042
     Dates: start: 20120315, end: 20120315
  3. RANITIDINE [Concomitant]
     Dosage: UNK
     Route: 042
  4. RANITIDINE [Concomitant]
     Dosage: 8 mg, UNK
     Route: 042
     Dates: start: 20120328, end: 20120328
  5. RANITIDINE [Concomitant]
     Dosage: 8 mg, UNK
     Route: 042
     Dates: start: 20120411, end: 20120411
  6. RANITIDINE [Concomitant]
     Dosage: 8 mg, UNK
     Route: 042
     Dates: start: 20120418, end: 20120418
  7. DEXAMETHASONE [Concomitant]
     Dosage: UNK
     Route: 042
  8. DEXAMETHASONE [Concomitant]
     Dosage: UNK
     Route: 042
     Dates: start: 20120411, end: 20120411
  9. CLEMASTINE [Concomitant]
     Dosage: UNK
  10. CLEXANE [Concomitant]
     Dosage: UNK
  11. DIGITOXIN [Concomitant]
     Dosage: UNK
  12. METOPROLOL [Concomitant]
     Dosage: UNK
  13. SPIRIVA [Concomitant]
     Dosage: UNK
  14. OXIS [Concomitant]
     Dosage: UNK
  15. ASPIRIN [Concomitant]
     Dosage: UNK

REACTIONS (4)
  - Neutropenic sepsis [Recovered/Resolved]
  - Septic shock [Recovered/Resolved]
  - Diarrhoea [Recovered/Resolved]
  - Renal failure [Recovered/Resolved]
